FAERS Safety Report 5098773-0 (Version None)
Quarter: 2006Q3

REPORT INFORMATION
  Report Type: 
  Country: None (occurrence: None)
  Receive Date: 20060907
  Receipt Date: 20060824
  Transmission Date: 20061208
  Serious: Yes (Death)
  Sender: FDA-Public Use
  Company Number: US-KINGPHARMUSA00001-K200601086

PATIENT
  Age: 68 Year
  Sex: Male

DRUGS (14)
  1. ALTACE [Suspect]
     Dosage: 7.5 MG, QD
     Route: 048
     Dates: end: 20060802
  2. DIFFU K [Suspect]
     Route: 048
     Dates: end: 20060802
  3. PRAVASTATIN [Suspect]
     Dosage: 20 MG, QD
     Route: 048
     Dates: end: 20060802
  4. VFEND [Suspect]
     Dosage: 400 MG, QD
     Route: 048
     Dates: start: 20060721, end: 20060801
  5. TARCEVA [Suspect]
     Dosage: 150 MG, QD
     Route: 048
     Dates: start: 20060729, end: 20060730
  6. GLUCOR [Suspect]
     Route: 048
     Dates: end: 20060802
  7. ISOPTIN [Concomitant]
     Dosage: 360 MG, UNK
     Route: 048
  8. ALDACTONE [Concomitant]
     Dosage: 25 MG, UNK
     Route: 048
  9. LASILIX [Concomitant]
     Dosage: 20 MG, UNK
     Route: 048
  10. ZYLORIC ^FAES^ [Concomitant]
     Dosage: 200 MG, QD
     Route: 048
  11. ADANCOR [Concomitant]
     Dosage: 20 MG, UNK
     Route: 048
  12. NITRODERM [Concomitant]
     Route: 023
  13. BRICANYL [Concomitant]
     Dosage: UNK, TID AEROSOL
     Route: 048
  14. ATROVENT [Concomitant]

REACTIONS (5)
  - CARDIO-RESPIRATORY ARREST [None]
  - DIARRHOEA [None]
  - DRUG INTERACTION [None]
  - MYOCARDIAL INFARCTION [None]
  - SUDDEN DEATH [None]
